FAERS Safety Report 23187635 (Version 3)
Quarter: 2023Q4

REPORT INFORMATION
  Report Type: Report from Study
  Country: FR (occurrence: FR)
  Receive Date: 20231115
  Receipt Date: 20231207
  Transmission Date: 20240110
  Serious: Yes (Hospitalization)
  Sender: FDA-Public Use
  Company Number: FR-ROCHE-3449043

PATIENT
  Age: 52 Year
  Sex: Male

DRUGS (3)
  1. BEVACIZUMAB [Suspect]
     Active Substance: BEVACIZUMAB
     Indication: Non-small cell lung cancer
     Dosage: 15 MILLIGRAM/KILOGRAM, Q3WK, DATE OF LAST ADMINISTRATION OF STUDY TREATMENT WAS: 05/OCT/2023
     Route: 042
     Dates: start: 20230601
  2. ATEZOLIZUMAB [Suspect]
     Active Substance: ATEZOLIZUMAB
     Indication: Non-small cell lung cancer
     Dosage: 1200 MILLIGRAM, Q3WK, DATE OF LAST ADMINISTRATION OF STUDY TREATMENT WAS: 05/OCT/2023
     Route: 040
     Dates: start: 20230601
  3. PACLITAXEL [Suspect]
     Active Substance: PACLITAXEL
     Indication: Non-small cell lung cancer
     Dosage: 200 MILLIGRAM/SQ. METER, Q3WK, DATE OF LAST ADMINISTRATION OF STUDY TREATMENT WAS: 05/OCT/2023
     Route: 040
     Dates: start: 20230601

REACTIONS (2)
  - Toxic skin eruption [Not Recovered/Not Resolved]
  - Lichenoid keratosis [Recovered/Resolved]

NARRATIVE: CASE EVENT DATE: 20231027
